FAERS Safety Report 13652296 (Version 1)
Quarter: 2017Q2

REPORT INFORMATION
  Report Type: Spontaneous
  Country: US (occurrence: US)
  Receive Date: 20170614
  Receipt Date: 20170614
  Transmission Date: 20170830
  Serious: Yes (Other)
  Sender: FDA-Public Use
  Company Number: US-PFIZER INC-2017254487

PATIENT
  Sex: Female

DRUGS (1)
  1. XELJANZ XR [Suspect]
     Active Substance: TOFACITINIB CITRATE
     Dosage: 11 MG, UNK

REACTIONS (6)
  - Tooth abscess [Unknown]
  - Diarrhoea [Recovered/Resolved]
  - Nausea [Unknown]
  - Abdominal pain [Unknown]
  - Dyspnoea [Unknown]
  - Somnolence [Recovered/Resolved]
